FAERS Safety Report 9156560 (Version 1)
Quarter: 2013Q1

REPORT INFORMATION
  Report Type: Spontaneous
  Country: US (occurrence: None)
  Receive Date: 20130307
  Receipt Date: 20130307
  Transmission Date: 20140127
  Serious: Yes (Other)
  Sender: FDA-Public Use
  Company Number: None

PATIENT
  Sex: 0

DRUGS (1)
  1. MARCAINE [Suspect]
     Route: 038
     Dates: start: 20130207, end: 20130217

REACTIONS (1)
  - Drug ineffective [None]
